FAERS Safety Report 7702506-6 (Version None)
Quarter: 2011Q3

REPORT INFORMATION
  Report Type: 
  Country: None (occurrence: None)
  Receive Date: 20110823
  Receipt Date: 20110815
  Transmission Date: 20111222
  Serious: No
  Sender: FDA-Public Use
  Company Number: US-BIOGENIDEC-2010BI041667

PATIENT
  Sex: Female

DRUGS (2)
  1. COPAXONE [Concomitant]
     Indication: MULTIPLE SCLEROSIS
  2. TYSABRI [Suspect]
     Indication: MULTIPLE SCLEROSIS
     Route: 042
     Dates: start: 20100810, end: 20110501

REACTIONS (10)
  - DYSSTASIA [None]
  - ASTHENIA [None]
  - GAIT DISTURBANCE [None]
  - SOMNOLENCE [None]
  - DRUG INEFFECTIVE [None]
  - HEPATIC FUNCTION ABNORMAL [None]
  - CHROMATURIA [None]
  - HYPERSOMNIA [None]
  - FEELING ABNORMAL [None]
  - ANTIBODY TEST [None]
